FAERS Safety Report 4818762-8 (Version None)
Quarter: 2005Q4

REPORT INFORMATION
  Report Type: 
  Country: None (occurrence: None)
  Receive Date: 20051101
  Receipt Date: 20051017
  Transmission Date: 20060501
  Serious: Yes (Hospitalization)
  Sender: FDA-Public Use
  Company Number: 2005002020

PATIENT
  Age: 70 Year
  Sex: Female

DRUGS (9)
  1. TARCEVA [Suspect]
     Indication: PANCREATIC CARCINOMA
     Dosage: 150 MG (QD), ORAL
     Route: 048
     Dates: start: 20050824, end: 20051012
  2. HYDROCHLOROTHIAZIDE [Concomitant]
  3. COUMADIN [Concomitant]
  4. OXYCODONE HCL [Concomitant]
  5. OXYCONTIN [Concomitant]
  6. PREDNISONE [Concomitant]
  7. COMPAZINE [Concomitant]
  8. SENOKOT [Concomitant]
  9. MIRALAX [Concomitant]

REACTIONS (1)
  - ATRIAL FIBRILLATION [None]
